FAERS Safety Report 20644842 (Version 1)
Quarter: 2022Q1

REPORT INFORMATION
  Report Type: Spontaneous
  Country: US (occurrence: US)
  Receive Date: 20220328
  Receipt Date: 20220328
  Transmission Date: 20220423
  Serious: No
  Sender: FDA-Public Use
  Company Number: US-NOVARTISTESTPH-NVSC2022US069698

PATIENT
  Sex: Male

DRUGS (2)
  1. MEKINIST [Suspect]
     Active Substance: TRAMETINIB DIMETHYL SULFOXIDE
     Indication: Neoplasm malignant
     Dosage: 1 DOSAGE FORM, QD
     Route: 048
     Dates: start: 20220224
  2. TAFINLAR [Suspect]
     Active Substance: DABRAFENIB MESYLATE
     Indication: Malignant histiocytosis
     Dosage: 2 DOSAGE FORM, Q12H
     Route: 048
     Dates: start: 20220225

REACTIONS (3)
  - Irritability [Unknown]
  - Weight decreased [Unknown]
  - Decreased appetite [Unknown]
